FAERS Safety Report 23033112 (Version 5)
Quarter: 2024Q2

REPORT INFORMATION
  Report Type: Spontaneous
  Country: US (occurrence: US)
  Receive Date: 20231005
  Receipt Date: 20240606
  Transmission Date: 20240716
  Serious: Yes (Other)
  Sender: FDA-Public Use
  Company Number: US-PFIZER INC-PV202300150235

PATIENT
  Age: 72 Year
  Sex: Female
  Weight: 58.957 kg

DRUGS (2)
  1. IBRANCE [Suspect]
     Active Substance: PALBOCICLIB
     Indication: Breast cancer metastatic
     Dosage: 100 MG, CYCLIC: CYCLE 1 AT  TAB DAILY FOR 21 DAYS THEN OFF FOR 7 DAYS
     Route: 048
     Dates: start: 202309
  2. IBRANCE [Suspect]
     Active Substance: PALBOCICLIB
     Dosage: CYCLE 2 + BEYOND: 125 MG 1 TAB DAILY FOR 21 DAYS THEN STOP FOR 7 DAYS

REACTIONS (1)
  - Hypoacusis [Recovered/Resolved]
